FAERS Safety Report 9776781 (Version 2)
Quarter: 2013Q4

REPORT INFORMATION
  Report Type: Spontaneous
  Country: JP (occurrence: JP)
  Receive Date: 20131220
  Receipt Date: 20131227
  Transmission Date: 20140711
  Serious: Yes (Other)
  Sender: FDA-Public Use
  Company Number: JP-ASTRAZENECA-2013SE92515

PATIENT
  Age: 74 Year
  Sex: Female

DRUGS (3)
  1. QUETIAPINE FUMARATE [Suspect]
     Dosage: GENERIC
     Route: 048
  2. EXCEGRAN [Concomitant]
     Route: 048
  3. EXCEGRAN [Concomitant]
     Dosage: DECREASED DOSE
     Route: 048

REACTIONS (2)
  - Hepatic function abnormal [Unknown]
  - Blood glucose increased [Unknown]
